FAERS Safety Report 25169004 (Version 1)
Quarter: 2025Q2

REPORT INFORMATION
  Report Type: Spontaneous
  Country: US (occurrence: US)
  Receive Date: 20250407
  Receipt Date: 20250407
  Transmission Date: 20250717
  Serious: No
  Sender: BAYER
  Company Number: US-BAYER-2025A044795

PATIENT
  Age: 92 Year
  Sex: Female
  Weight: 46.9 kg

DRUGS (17)
  1. CIPROFLOXACIN [Suspect]
     Active Substance: CIPROFLOXACIN
     Indication: Urinary tract infection
  2. TYVASO [Suspect]
     Active Substance: TREPROSTINIL
     Indication: Pulmonary arterial hypertension
     Dosage: 54 ?G, QID
     Dates: start: 20240108
  3. ALBUTEROL [Suspect]
     Active Substance: ALBUTEROL
     Indication: Dyspnoea
  4. ZOLOFT [Concomitant]
     Active Substance: SERTRALINE HYDROCHLORIDE
  5. ELIQUIS [Concomitant]
     Active Substance: APIXABAN
  6. COENZYME Q10 [Concomitant]
     Active Substance: DIETARY SUPPLEMENT\UBIDECARENONE
  7. POTASSIUM CHLORIDE [Concomitant]
     Active Substance: POTASSIUM CHLORIDE
  8. ACETAMINOPHEN\HYDROCODONE [Concomitant]
     Active Substance: ACETAMINOPHEN\HYDROCODONE
  9. SILDENAFIL CITRATE [Concomitant]
     Active Substance: SILDENAFIL CITRATE
  10. METOPROLOL SUCCINATE [Concomitant]
     Active Substance: METOPROLOL SUCCINATE
  11. VITAMIN D3 [Concomitant]
     Active Substance: CHOLECALCIFEROL
  12. OXYGEN [Concomitant]
     Active Substance: OXYGEN
  13. TUMS [Concomitant]
     Active Substance: CALCIUM CARBONATE
  14. OMEPRAZOLE [Concomitant]
     Active Substance: OMEPRAZOLE
  15. ESTRADIOL [Concomitant]
     Active Substance: ESTRADIOL
  16. FERROUS SULFATE [Concomitant]
     Active Substance: FERROUS SULFATE
  17. TORSEMIDE [Concomitant]
     Active Substance: TORSEMIDE

REACTIONS (2)
  - Dyspnoea [Unknown]
  - Feeling hot [Unknown]

NARRATIVE: CASE EVENT DATE: 20240108
